FAERS Safety Report 9853905 (Version 3)
Quarter: 2014Q3

REPORT INFORMATION
  Report Type: Spontaneous
  Country: US (occurrence: US)
  Receive Date: 20140129
  Receipt Date: 20140729
  Transmission Date: 20150326
  Serious: Yes (Hospitalization, Other)
  Sender: FDA-Public Use
  Company Number: US-009507513-1401USA012859

PATIENT
  Age: 34 Year
  Sex: Female

DRUGS (1)
  1. NUVARING [Suspect]
     Active Substance: ETHINYL ESTRADIOL\ETONOGESTREL
     Indication: CONTRACEPTION
     Dosage: UNK
     Route: 067
     Dates: start: 200908

REACTIONS (16)
  - Atelectasis [Unknown]
  - Tricuspid valve incompetence [Unknown]
  - Pulmonary hypertension [Unknown]
  - Renal failure acute [Recovered/Resolved]
  - Cervical spinal stenosis [Unknown]
  - Dilatation ventricular [Unknown]
  - Overdose [Unknown]
  - Hypotension [Recovered/Resolved]
  - Mental status changes [Unknown]
  - Intervertebral disc operation [Unknown]
  - Pulmonary embolism [Unknown]
  - Swelling [Unknown]
  - Pericardial effusion [Unknown]
  - Neck pain [Not Recovered/Not Resolved]
  - Metabolic acidosis [Recovered/Resolved]
  - Pleural effusion [Unknown]

NARRATIVE: CASE EVENT DATE: 20100323
